FAERS Safety Report 8215927-2 (Version None)
Quarter: 2012Q1

REPORT INFORMATION
  Report Type: 
  Country: None (occurrence: None)
  Receive Date: 20120316
  Receipt Date: 20120313
  Transmission Date: 20120608
  Serious: No
  Sender: FDA-Public Use
  Company Number: JP-PFIZER INC-2012033644

PATIENT
  Age: 36 Year
  Sex: Female

DRUGS (4)
  1. SULPIRIDE [Concomitant]
     Dosage: 50 MG, 1X/DAY
     Route: 048
  2. ALPRAZOLAM [Concomitant]
     Dosage: 0.4 MG, 1X/DAY
     Route: 048
  3. RISPERDAL [Concomitant]
     Dosage: 1.0 ML, 1X/DAY
     Route: 048
  4. ZOLOFT [Suspect]
     Indication: ANXIETY
     Dosage: 25 MG/ DAY
     Route: 048
     Dates: start: 20120203, end: 20120203

REACTIONS (3)
  - DEHYDRATION [None]
  - VOMITING [None]
  - MALAISE [None]
